FAERS Safety Report 4914798-7 (Version None)
Quarter: 2006Q1

REPORT INFORMATION
  Report Type: 
  Country: None (occurrence: None)
  Receive Date: 20060113
  Receipt Date: 20051021
  Transmission Date: 20060701
  Serious: No
  Sender: FDA-Public Use
  Company Number: 2005SP003623

PATIENT
  Age: 42 Year
  Sex: Male
  Weight: 92.0802 kg

DRUGS (4)
  1. LUNESTA [Suspect]
     Indication: INITIAL INSOMNIA
     Dosage: 2 MG;HS;ORAL
     Route: 048
     Dates: start: 20050912, end: 20050916
  2. ALTACE [Concomitant]
  3. ADVICOR [Concomitant]
  4. ASPIRIN [Concomitant]

REACTIONS (2)
  - DRUG INEFFECTIVE [None]
  - INITIAL INSOMNIA [None]
